FAERS Safety Report 20698489 (Version 4)
Quarter: 2022Q3

REPORT INFORMATION
  Report Type: Report from Study
  Country: AR (occurrence: AR)
  Receive Date: 20220412
  Receipt Date: 20220713
  Transmission Date: 20221026
  Serious: Yes (Hospitalization, Other)
  Sender: FDA-Public Use
  Company Number: AR-NOVARTISPH-NVSC2022AR061286

PATIENT
  Age: 45 Year
  Sex: Female

DRUGS (4)
  1. MAYZENT [Suspect]
     Active Substance: SIPONIMOD
     Indication: Multiple sclerosis
     Dosage: 2 MG, QD
     Route: 048
     Dates: start: 20220211, end: 20220314
  2. MAYZENT [Suspect]
     Active Substance: SIPONIMOD
     Dosage: 0.5 MG
     Route: 048
  3. MAYZENT [Suspect]
     Active Substance: SIPONIMOD
     Dosage: 2 MG, QD
     Route: 048
     Dates: start: 20220331, end: 20220401
  4. MAYZENT [Suspect]
     Active Substance: SIPONIMOD
     Dosage: 2 MG/KG
     Route: 048
     Dates: end: 20220425

REACTIONS (16)
  - Multiple sclerosis relapse [Unknown]
  - Amnesia [Unknown]
  - Hypersensitivity [Recovered/Resolved]
  - Rash macular [Unknown]
  - Pruritus [Unknown]
  - Pyrexia [Unknown]
  - Skin lesion [Unknown]
  - Eosinophilia [Unknown]
  - Rash [Unknown]
  - Multiple sclerosis [Unknown]
  - COVID-19 [Recovering/Resolving]
  - Oropharyngeal pain [Unknown]
  - Cough [Unknown]
  - Malaise [Unknown]
  - Influenza like illness [Unknown]
  - Therapeutic product effect decreased [Unknown]

NARRATIVE: CASE EVENT DATE: 20220301
